FAERS Safety Report 9632253 (Version 1)
Quarter: 2013Q4

REPORT INFORMATION
  Report Type: Spontaneous
  Country: JP (occurrence: JP)
  Receive Date: 20131018
  Receipt Date: 20131018
  Transmission Date: 20140711
  Serious: Yes (Life-Threatening)
  Sender: FDA-Public Use
  Company Number: JP-ASTRAZENECA-2013SE76609

PATIENT
  Age: 68 Year
  Sex: Female

DRUGS (6)
  1. TENORMIN [Suspect]
     Indication: ARRHYTHMIA
     Dosage: DOSE UNKNOWN
     Route: 048
  2. AMLODIPINE [Suspect]
     Dosage: DOSE UNKNOWN
     Route: 065
  3. PSYCHOTROPIC AGENTS [Suspect]
     Dosage: DOSE UNKNOWN
     Route: 065
  4. NORADRENALINE [Concomitant]
     Dosage: DOSE UNKNOWN
     Route: 065
  5. GLUCAGON [Concomitant]
     Dosage: DOSE UNKNOWN
     Route: 065
  6. BOSMIN [Concomitant]
     Dosage: DOSE UNKNOWN
     Route: 065

REACTIONS (4)
  - Overdose [Unknown]
  - Depressed level of consciousness [Recovered/Resolved]
  - Heart rate decreased [Recovered/Resolved]
  - Hypotension [Recovered/Resolved]
